FAERS Safety Report 12640845 (Version 1)
Quarter: 2016Q3

REPORT INFORMATION
  Report Type: Spontaneous
  Country: US (occurrence: US)
  Receive Date: 20160810
  Receipt Date: 20160810
  Transmission Date: 20161109
  Serious: Yes (Hospitalization)
  Sender: FDA-Public Use
  Company Number: US-ACTELION-A-US2016-140332

PATIENT
  Age: 40 Year
  Sex: Female

DRUGS (7)
  1. ADCIRCA [Concomitant]
     Active Substance: TADALAFIL
  2. SPIRONOLACTONE. [Concomitant]
     Active Substance: SPIRONOLACTONE
  3. OPSUMIT [Suspect]
     Active Substance: MACITENTAN
     Indication: PULMONARY ARTERIAL HYPERTENSION
     Dosage: 10 MG, QD
     Route: 048
     Dates: start: 20160511
  4. TORSEMIDE. [Concomitant]
     Active Substance: TORSEMIDE
  5. ASPIRIN. [Concomitant]
     Active Substance: ASPIRIN
  6. COLCRYS [Concomitant]
     Active Substance: COLCHICINE
  7. CARVEDILOL. [Concomitant]
     Active Substance: CARVEDILOL

REACTIONS (3)
  - Condition aggravated [Recovered/Resolved]
  - Dyspnoea [Unknown]
  - Fluid retention [Recovered/Resolved]

NARRATIVE: CASE EVENT DATE: 20160705
